FAERS Safety Report 18606829 (Version 1)
Quarter: 2020Q4

REPORT INFORMATION
  Report Type: Report from Study
  Country: ES (occurrence: ES)
  Receive Date: 20201211
  Receipt Date: 20201211
  Transmission Date: 20210114
  Serious: Yes (Hospitalization)
  Sender: FDA-Public Use
  Company Number: ES-ELI_LILLY_AND_COMPANY-ES202010005433

PATIENT
  Sex: Female

DRUGS (1)
  1. FORSTEO [Suspect]
     Active Substance: TERIPARATIDE
     Indication: OSTEOPOROSIS
     Dosage: 20 UG, DAILY
     Route: 058
     Dates: start: 20180724

REACTIONS (5)
  - Hiatus hernia [Unknown]
  - Biliary colic [Unknown]
  - Incorrect product administration duration [Not Recovered/Not Resolved]
  - Impaired healing [Unknown]
  - Blood glucose increased [Unknown]
